FAERS Safety Report 8425273-X (Version None)
Quarter: 2012Q2

REPORT INFORMATION
  Report Type: 
  Country: None (occurrence: None)
  Receive Date: 20120611
  Receipt Date: 20120529
  Transmission Date: 20120825
  Serious: Yes (Other)
  Sender: FDA-Public Use
  Company Number: AU-JNJFOC-20120506880

PATIENT
  Age: 40 Year
  Sex: Female

DRUGS (2)
  1. INVEGA SUSTENNA [Suspect]
     Indication: SCHIZOPHRENIA
     Route: 030
     Dates: start: 20120405
  2. INVEGA SUSTENNA [Suspect]
     Route: 030

REACTIONS (5)
  - INSOMNIA [None]
  - FEELING ABNORMAL [None]
  - DECREASED APPETITE [None]
  - SEDATION [None]
  - WEIGHT DECREASED [None]
